FAERS Safety Report 4945074-4 (Version None)
Quarter: 2006Q1

REPORT INFORMATION
  Report Type: 
  Country: None (occurrence: None)
  Receive Date: 20060316
  Receipt Date: 20060306
  Transmission Date: 20060701
  Serious: Yes (Life-Threatening, Hospitalization)
  Sender: FDA-Public Use
  Company Number: CA-JNJFOC-20060301528

PATIENT
  Sex: Female

DRUGS (1)
  1. REMICADE [Suspect]
     Indication: RHEUMATOID ARTHRITIS
     Route: 042

REACTIONS (10)
  - DIAPHRAGMATIC RUPTURE [None]
  - DIFFICULT TO WEAN FROM VENTILATOR [None]
  - PELVIC FRACTURE [None]
  - PNEUMOTHORAX [None]
  - RADIUS FRACTURE [None]
  - RIB FRACTURE [None]
  - ROAD TRAFFIC ACCIDENT [None]
  - SKIN LACERATION [None]
  - SPINAL FRACTURE [None]
  - SPLENIC RUPTURE [None]
